FAERS Safety Report 14909386 (Version 2)
Quarter: 2018Q2

REPORT INFORMATION
  Report Type: Spontaneous
  Country: US (occurrence: US)
  Receive Date: 20180517
  Receipt Date: 20180611
  Transmission Date: 20180711
  Serious: Yes (Other)
  Sender: FDA-Public Use
  Company Number: US-009507513-1805USA005247

PATIENT
  Age: 49 Year
  Sex: Female

DRUGS (7)
  1. DENOSUMAB [Concomitant]
     Active Substance: DENOSUMAB
     Dosage: 120 MG, MONTHLY
     Dates: start: 201509, end: 201703
  2. TEMODAR [Suspect]
     Active Substance: TEMOZOLOMIDE
     Indication: PARAGANGLION NEOPLASM MALIGNANT
     Dosage: 200 MG/M2, DAILY (ON DAYS 1-5 IN 28-DAY CYCLES)
     Route: 048
     Dates: start: 201505, end: 201507
  3. DENOSUMAB [Concomitant]
     Active Substance: DENOSUMAB
     Dosage: 120 MG, MONTHLY
     Dates: start: 201505, end: 201507
  4. SOMATULINE AUTOGEL [Concomitant]
     Active Substance: LANREOTIDE ACETATE
     Dosage: 120 MG, EVERY 14 DAYS
     Dates: start: 201509, end: 201703
  5. TEMODAR [Suspect]
     Active Substance: TEMOZOLOMIDE
     Dosage: 75 MG/M2, CYCLICAL (21/28-DAY REGIMEN)
     Route: 048
     Dates: start: 201509, end: 201703
  6. SOMATULINE AUTOGEL [Concomitant]
     Active Substance: LANREOTIDE ACETATE
     Dosage: 120 MG, EVERY 14 DAYS
     Dates: start: 201309, end: 201507
  7. CAPECITABINE. [Concomitant]
     Active Substance: CAPECITABINE
     Indication: PARAGANGLION NEOPLASM MALIGNANT
     Dosage: 750 MG/M2 TWICE A DAY; ON DAYS 1-14
     Dates: start: 201505, end: 201507

REACTIONS (2)
  - Lymphopenia [Unknown]
  - Off label use [Unknown]

NARRATIVE: CASE EVENT DATE: 201505
